FAERS Safety Report 6276500-9 (Version None)
Quarter: 2009Q3

REPORT INFORMATION
  Report Type: 
  Country: None (occurrence: None)
  Receive Date: 20090722
  Receipt Date: 20090715
  Transmission Date: 20100115
  Serious: No
  Sender: FDA-Public Use
  Company Number: AU-NOVOPROD-289317

PATIENT
  Sex: Male
  Weight: 69.9 kg

DRUGS (16)
  1. NOVOLOG [Suspect]
     Indication: TYPE 2 DIABETES MELLITUS
     Dosage: 14 U, QD
     Route: 058
     Dates: start: 20081110
  2. MIXTARD HUMAN 70/30 [Concomitant]
     Dosage: 30 IU, QD
     Route: 058
  3. COUMADIN [Concomitant]
     Dosage: 1 MG, UNK
     Route: 048
  4. COUMADIN [Concomitant]
     Dosage: 2 MG, UNK
     Route: 048
  5. COUMADIN [Concomitant]
     Dosage: 5 MG, PRN
     Route: 048
  6. FORMET [Concomitant]
     Dosage: 1000 MG, QD
     Route: 048
  7. CARTIA                             /00002701/ [Concomitant]
     Dosage: 43 MG, QD
     Route: 048
  8. LEVOTHYROXINE SODIUM [Concomitant]
     Dosage: 150 MG, QD
     Route: 048
  9. UREX                               /00032601/ [Concomitant]
     Dosage: 1 UNK, QD
     Route: 048
  10. LANOXIN [Concomitant]
     Dosage: 62.5 MG, BID
     Route: 048
  11. FIBSOL [Concomitant]
     Dosage: 1 UNK, QD
     Route: 048
  12. SIMVAR [Concomitant]
     Dosage: 1 UNK, QD
     Route: 048
  13. NITROLINGUAL PUMPSPRAY [Concomitant]
  14. VENTOLIN [Concomitant]
     Dosage: UNK, PRN
  15. BIOGLAN [Concomitant]
     Dosage: .5 TAB, QD
     Route: 048
  16. OROXIN                             /00032701/ [Concomitant]
     Dosage: 100 MG, QD
     Route: 048

REACTIONS (2)
  - DEVICE BREAKAGE [None]
  - INJECTION SITE HAEMORRHAGE [None]
